FAERS Safety Report 10178220 (Version 1)
Quarter: 2014Q2

REPORT INFORMATION
  Report Type: Spontaneous
  Country: US (occurrence: None)
  Receive Date: 20140516
  Receipt Date: 20140516
  Transmission Date: 20141212
  Serious: Yes (Death, Life-Threatening, Hospitalization, Disabling, Other)
  Sender: FDA-Public Use
  Company Number: None

PATIENT
  Age: 75 Year
  Sex: Male
  Weight: 88.6 kg

DRUGS (4)
  1. DAPTOMYCIN (CUBICIN) [Suspect]
     Indication: OSTEOMYELITIS
     Dosage: INFUSION
     Dates: start: 20131104, end: 20131212
  2. DONAPEZIL [Concomitant]
  3. BENAZEPRIL HCL [Concomitant]
  4. XALATAB [Concomitant]

REACTIONS (6)
  - Osteomyelitis [None]
  - Fatigue [None]
  - Dizziness [None]
  - Respiratory failure [None]
  - Eosinophilic pneumonia [None]
  - Deep vein thrombosis [None]
